FAERS Safety Report 17871754 (Version 1)
Quarter: 2020Q2

REPORT INFORMATION
  Report Type: Spontaneous
  Country: US (occurrence: US)
  Receive Date: 20200608
  Receipt Date: 20200608
  Transmission Date: 20200714
  Serious: No
  Sender: FDA-Public Use
  Company Number: None

PATIENT
  Age: 87 Year
  Sex: Female
  Weight: 74.57 kg

DRUGS (15)
  1. KISQALI [Suspect]
     Active Substance: RIBOCICLIB
     Indication: BREAST CANCER
     Dosage: ?          OTHER FREQUENCY:DAILY FOR 21/28;?
     Route: 048
     Dates: start: 20200514, end: 20200608
  2. IRON [Concomitant]
     Active Substance: IRON
  3. WARFARIN 5MG [Concomitant]
     Active Substance: WARFARIN
  4. LETROZOLE 2.5MG [Concomitant]
     Active Substance: LETROZOLE
  5. MORPHINE SULFATE ER [Concomitant]
     Active Substance: MORPHINE SULFATE
  6. ROPINIROLE 0.25MG [Concomitant]
  7. PANTOPRAZOLE 40MG [Concomitant]
     Active Substance: PANTOPRAZOLE SODIUM
  8. PROLIA [Concomitant]
     Active Substance: DENOSUMAB
  9. FAMOTIDINE 10MG [Concomitant]
  10. SPIRONOLACTONE 25MG [Concomitant]
     Active Substance: SPIRONOLACTONE
  11. CARVEDILOL 25MG [Concomitant]
     Active Substance: CARVEDILOL
  12. NORCO 5-325MG [Concomitant]
  13. VISTARIL [Concomitant]
     Active Substance: HYDROXYZINE PAMOATE
  14. GABAPENTIN 300MG [Concomitant]
     Active Substance: GABAPENTIN
  15. LIPITOR [Concomitant]
     Active Substance: ATORVASTATIN CALCIUM

REACTIONS (4)
  - Vomiting [None]
  - Abdominal pain upper [None]
  - Dizziness [None]
  - Therapy cessation [None]

NARRATIVE: CASE EVENT DATE: 20200608
